FAERS Safety Report 19856064 (Version 2)
Quarter: 2022Q3

REPORT INFORMATION
  Report Type: Spontaneous
  Country: CA (occurrence: CA)
  Receive Date: 20210920
  Receipt Date: 20220712
  Transmission Date: 20221027
  Serious: Yes (Hospitalization, Other)
  Sender: FDA-Public Use
  Company Number: CA-GLAXOSMITHKLINE-CA2021AMR197168

PATIENT

DRUGS (1)
  1. BENLYSTA [Suspect]
     Active Substance: BELIMUMAB
     Indication: Systemic lupus erythematosus
     Dosage: UNK

REACTIONS (7)
  - Diarrhoea [Unknown]
  - Blood pressure decreased [Unknown]
  - Gait disturbance [Unknown]
  - Gait inability [Unknown]
  - Fall [Unknown]
  - Peripheral swelling [Unknown]
  - Near death experience [Unknown]
